FAERS Safety Report 5733299-X (Version None)
Quarter: 2008Q2

REPORT INFORMATION
  Report Type: 
  Country: None (occurrence: None)
  Receive Date: 20080509
  Receipt Date: 20080509
  Transmission Date: 20081010
  Serious: Yes (Other)
  Sender: FDA-Public Use
  Company Number: A0727199A

PATIENT
  Age: 37 Year
  Sex: Female
  Weight: 112 kg

DRUGS (1)
  1. ALLI [Suspect]
     Dates: start: 20080101

REACTIONS (2)
  - PNEUMONIA [None]
  - WEIGHT INCREASED [None]
